FAERS Safety Report 10549628 (Version 2)
Quarter: 2014Q4

REPORT INFORMATION
  Report Type: Spontaneous
  Country: FR (occurrence: FR)
  Receive Date: 20141028
  Receipt Date: 20141216
  Transmission Date: 20150529
  Serious: Yes (Life-Threatening)
  Sender: FDA-Public Use
  Company Number: FR-PFIZER INC-2014293115

PATIENT
  Age: 15 Year
  Sex: Male

DRUGS (4)
  1. DOLIPRANE [Suspect]
     Active Substance: ACETAMINOPHEN
     Dosage: 1 G, 1X/DAY
     Route: 048
     Dates: start: 20141007, end: 20141007
  2. DOLIPRANE [Suspect]
     Active Substance: ACETAMINOPHEN
     Indication: PAIN
     Dosage: UNK
     Route: 048
     Dates: start: 2014, end: 2014
  3. VOLTARENE [Suspect]
     Active Substance: DICLOFENAC SODIUM
     Indication: MUSCLE RUPTURE
     Dosage: 50 MG, SINGLE
     Route: 048
     Dates: start: 20141007, end: 20141007
  4. XANAX [Suspect]
     Active Substance: ALPRAZOLAM
     Dosage: 0.25 MG, SINGLE
     Route: 048
     Dates: start: 20141007, end: 20141007

REACTIONS (1)
  - Anaphylactic shock [Recovered/Resolved]

NARRATIVE: CASE EVENT DATE: 20141007
